FAERS Safety Report 13423952 (Version 2)
Quarter: 2019Q4

REPORT INFORMATION
  Report Type: Spontaneous
  Country: US (occurrence: US)
  Receive Date: 20170410
  Receipt Date: 20191021
  Transmission Date: 20200122
  Serious: Yes (Other)
  Sender: FDA-Public Use
  Company Number: US-PFIZER INC-2017155972

PATIENT
  Age: 60 Year

DRUGS (3)
  1. VIAGRA [Suspect]
     Active Substance: SILDENAFIL CITRATE
     Indication: ERECTILE DYSFUNCTION
     Dosage: 50 MG, AS NEEDED (2X/WEEK)
     Route: 048
     Dates: start: 20030221, end: 20110607
  2. VIAGRA [Suspect]
     Active Substance: SILDENAFIL CITRATE
     Dosage: 100 MG, AS NEEDED (2X/WEEK)
     Route: 048
     Dates: start: 20070810, end: 20150123
  3. CIALIS [Suspect]
     Active Substance: TADALAFIL
     Indication: ERECTILE DYSFUNCTION
     Dosage: 100 MG, AS NEEDED (2X/WEEK)
     Dates: start: 20050211, end: 20050504

REACTIONS (4)
  - Metastases to liver [Unknown]
  - Malignant melanoma [Unknown]
  - Metastases to lymph nodes [Unknown]
  - Metastatic malignant melanoma [Unknown]

NARRATIVE: CASE EVENT DATE: 200906
